FAERS Safety Report 22587330 (Version 1)
Quarter: 2023Q2

REPORT INFORMATION
  Report Type: Spontaneous
  Country: US (occurrence: None)
  Receive Date: 20230612
  Receipt Date: 20230612
  Transmission Date: 20230721
  Serious: No
  Sender: FDA-Public Use
  Company Number: 2023A134282

PATIENT
  Weight: 51.3 kg

DRUGS (1)
  1. BREZTRI [Suspect]
     Active Substance: BUDESONIDE\FORMOTEROL\GLYCOPYRROLATE
     Indication: Chronic obstructive pulmonary disease
     Route: 055

REACTIONS (7)
  - Incorrect dose administered by device [Unknown]
  - Device defective [Unknown]
  - Expired product administered [Unknown]
  - Wrong technique in device usage process [Unknown]
  - Cough [Unknown]
  - Therapeutic product effect incomplete [Unknown]
  - Device use issue [Unknown]
